FAERS Safety Report 12854483 (Version 2)
Quarter: 2017Q1

REPORT INFORMATION
  Report Type: Spontaneous
  Country: TW (occurrence: TW)
  Receive Date: 20161017
  Receipt Date: 20170209
  Transmission Date: 20170428
  Serious: Yes (Other)
  Sender: FDA-Public Use
  Company Number: TW-BAXTER-2016BAX049942

PATIENT
  Age: 34 Year
  Sex: Female
  Weight: 49 kg

DRUGS (2)
  1. TISSEEL [Suspect]
     Active Substance: FIBRINOGEN HUMAN\THROMBIN HUMAN
     Indication: OVARIAN CYSTECTOMY
     Route: 065
     Dates: start: 20160924, end: 20160924
  2. NITROGEN. [Suspect]
     Active Substance: NITROGEN
     Indication: DRUG THERAPY
     Route: 065
     Dates: start: 20160924, end: 20160924

REACTIONS (4)
  - Subcutaneous emphysema [Recovered/Resolved]
  - Drug administration error [Unknown]
  - Pneumothorax [Unknown]
  - Skin haemorrhage [Unknown]

NARRATIVE: CASE EVENT DATE: 20160924
